FAERS Safety Report 8438449-2 (Version None)
Quarter: 2012Q2

REPORT INFORMATION
  Report Type: 
  Country: None (occurrence: None)
  Receive Date: 20120614
  Receipt Date: 20120606
  Transmission Date: 20120825
  Serious: Yes (Hospitalization, Other)
  Sender: FDA-Public Use
  Company Number: US-BRISTOL-MYERS SQUIBB COMPANY-16618092

PATIENT
  Age: 27 Year
  Sex: Female

DRUGS (6)
  1. ABILIFY [Suspect]
     Indication: BIPOLAR I DISORDER
     Route: 048
     Dates: start: 20120420, end: 20120506
  2. COCAINE [Suspect]
  3. SEROQUEL [Suspect]
  4. ZOLOFT [Suspect]
  5. MARIJUANA [Suspect]
  6. CELEXA [Concomitant]

REACTIONS (6)
  - BLOOD PRESSURE INCREASED [None]
  - DRUG ABUSE [None]
  - SWOLLEN TONGUE [None]
  - HEART RATE INCREASED [None]
  - FEELING ABNORMAL [None]
  - DROOLING [None]
